FAERS Safety Report 5874187-8 (Version None)
Quarter: 2008Q3

REPORT INFORMATION
  Report Type: 
  Country: None (occurrence: None)
  Receive Date: 20080908
  Receipt Date: 20080828
  Transmission Date: 20090109
  Serious: Yes (Hospitalization)
  Sender: FDA-Public Use
  Company Number: US-SANOFI-SYNTHELABO-F01200801346

PATIENT
  Sex: Female

DRUGS (8)
  1. OXALIPLATIN [Suspect]
     Indication: COLORECTAL CANCER
     Dosage: UNK
     Dates: start: 20080724, end: 20080724
  2. XELODA [Suspect]
     Route: 048
     Dates: start: 20080708
  3. GLIPIZIDE [Concomitant]
  4. ZOFRAN [Concomitant]
  5. SIMVASTATIN [Concomitant]
  6. PROTONIX [Concomitant]
  7. UNKNOWN GENERIC DRUG [Concomitant]
  8. ATENOLOL [Concomitant]

REACTIONS (5)
  - BLOOD POTASSIUM DECREASED [None]
  - HAEMOGLOBIN DECREASED [None]
  - NAUSEA [None]
  - TRANSIENT ISCHAEMIC ATTACK [None]
  - VOMITING [None]
